FAERS Safety Report 6877042-X (Version None)
Quarter: 2010Q3

REPORT INFORMATION
  Report Type: 
  Country: None (occurrence: None)
  Receive Date: 20100727
  Receipt Date: 20100519
  Transmission Date: 20110219
  Serious: Yes (Death)
  Sender: FDA-Public Use
  Company Number: CH-ROCHE-704141

PATIENT
  Sex: Female
  Weight: 51 kg

DRUGS (1)
  1. METHOXY POLYETHYLENE GLYCOL-EPOETIN BETA [Suspect]
     Route: 058
     Dates: end: 20091202

REACTIONS (2)
  - FALL [None]
  - FRACTURE [None]
